FAERS Safety Report 22127972 (Version 1)
Quarter: 2023Q1

REPORT INFORMATION
  Report Type: Spontaneous
  Country: US (occurrence: US)
  Receive Date: 20230323
  Receipt Date: 20230323
  Transmission Date: 20230418
  Serious: No
  Sender: FDA-Public Use
  Company Number: US-ALLERGAN-2237411US

PATIENT
  Age: 91 Year
  Sex: Male

DRUGS (1)
  1. LINZESS [Suspect]
     Active Substance: LINACLOTIDE
     Indication: Product used for unknown indication
     Dosage: UNK UNK, Q WEEK

REACTIONS (4)
  - Heart valve incompetence [Unknown]
  - Faeces discoloured [Unknown]
  - Bowel movement irregularity [Unknown]
  - Diarrhoea [Unknown]
